FAERS Safety Report 21571014 (Version 1)
Quarter: 2022Q4

REPORT INFORMATION
  Report Type: Spontaneous
  Country: CA (occurrence: CA)
  Receive Date: 20221109
  Receipt Date: 20221109
  Transmission Date: 20230112
  Serious: Yes (Other)
  Sender: FDA-Public Use
  Company Number: CA-SA-SAC20221103001708

PATIENT
  Age: 68 Year
  Sex: Female

DRUGS (9)
  1. KEVZARA [Suspect]
     Active Substance: SARILUMAB
     Indication: Rheumatoid arthritis
     Dosage: 200 MG
     Route: 058
  2. COVID-19 VACCINE NOS [Suspect]
     Active Substance: COVID-19 VACCINE NOS
     Indication: COVID-19 immunisation
     Dosage: UNK UNK, TOTAL
     Route: 030
  3. AMITRIPTYLINE [Concomitant]
     Active Substance: AMITRIPTYLINE
     Dosage: 25 MG
  4. LEUCOVORIN CALCIUM [Concomitant]
     Active Substance: LEUCOVORIN CALCIUM
     Dosage: 1 MG, QW
  5. METHOTREXATE [Concomitant]
     Active Substance: METHOTREXATE
     Dosage: 1 ML, QW
  6. ROSUVASTATIN CALCIUM [Concomitant]
     Active Substance: ROSUVASTATIN CALCIUM
     Dosage: 10 MG
  7. HERBALS\PLANTAGO OVATA LEAF [Concomitant]
     Active Substance: HERBALS\PLANTAGO OVATA LEAF
     Dosage: UNK UNK, QD
  8. CALCIUM [Concomitant]
     Active Substance: CALCIUM
     Dosage: 1200 MG, BID
  9. VITAMIN D NOS [Concomitant]
     Active Substance: VITAMIN D NOS
     Dosage: 400 MG, BID

REACTIONS (4)
  - Arthropod sting [Not Recovered/Not Resolved]
  - Cellulitis [Not Recovered/Not Resolved]
  - Localised infection [Not Recovered/Not Resolved]
  - Product dose omission issue [Unknown]
